FAERS Safety Report 4590506-7 (Version None)
Quarter: 2005Q1

REPORT INFORMATION
  Report Type: 
  Country: None (occurrence: None)
  Receive Date: 20050217
  Receipt Date: 20050204
  Transmission Date: 20050727
  Serious: Yes (Other)
  Sender: FDA-Public Use
  Company Number: 2005026325

PATIENT
  Age: 82 Year
  Sex: Male
  Weight: 63.5036 kg

DRUGS (6)
  1. LIPITOR [Suspect]
     Indication: ILL-DEFINED DISORDER
     Dates: start: 19980101, end: 20050101
  2. DILTIAZEM HYDROCHLORIDE [Concomitant]
  3. TERAZOSIN HYDROCHLORIDE [Concomitant]
  4. TESTOSTERONE [Concomitant]
  5. ALL OTHER THERAPEUTIC PRODUCTS (ALL OTHER THERAPEUTIC PRODUCTS) [Concomitant]
  6. ACETYLSALICYLIC ACID (ACETILSALICYLIC ACID) [Concomitant]

REACTIONS (5)
  - ANAEMIA [None]
  - BONE MARROW DEPRESSION [None]
  - CEREBROVASCULAR ACCIDENT [None]
  - DYSPHASIA [None]
  - MARROW HYPERPLASIA [None]
